FAERS Safety Report 7150574-5 (Version None)
Quarter: 2010Q4

REPORT INFORMATION
  Report Type: 
  Country: None (occurrence: None)
  Receive Date: 20101210
  Receipt Date: 20101203
  Transmission Date: 20110411
  Serious: Yes (Other)
  Sender: FDA-Public Use
  Company Number: US-JNJCH-2010028048

PATIENT
  Age: 75 Year
  Sex: Female
  Weight: 98.9 kg

DRUGS (1)
  1. DESITIN CREAMY DIAPER RASH OINTMENT [Suspect]
     Indication: PROPHYLAXIS
     Dosage: TEXT:LIBERALLY TWICE PER DAY
     Route: 061

REACTIONS (1)
  - APPLICATION SITE VESICLES [None]
